FAERS Safety Report 19996538 (Version 1)
Quarter: 2021Q4

REPORT INFORMATION
  Report Type: Spontaneous
  Country: FR (occurrence: FR)
  Receive Date: 20211026
  Receipt Date: 20211026
  Transmission Date: 20220304
  Serious: Yes (Hospitalization)
  Sender: FDA-Public Use
  Company Number: None

PATIENT
  Age: 61 Year
  Sex: Male

DRUGS (4)
  1. LANSOPRAZOLE [Suspect]
     Active Substance: LANSOPRAZOLE
     Indication: Product used for unknown indication
     Dosage: 15 MILLIGRAM DAILY;
     Route: 048
     Dates: start: 202105
  2. KARDEGIC [Concomitant]
     Active Substance: ASPIRIN DL-LYSINE
     Indication: Mitral valve repair
     Dosage: POWDER FOR ORAL SOLUTION IN SACHET-DOSE, 1DF
     Route: 048
     Dates: start: 202106
  3. BISOPROLOL FUMARATE [Concomitant]
     Active Substance: BISOPROLOL FUMARATE
     Indication: Mitral valve repair
     Dosage: 2.5 MILLIGRAM DAILY; 1 TAB IN THE MORNING
     Route: 048
     Dates: start: 202106
  4. RAMIPRIL [Concomitant]
     Active Substance: RAMIPRIL
     Indication: Hypertension
     Dosage: 2.5 MILLIGRAM DAILY; 2.5 MG IN THE MORNING
     Route: 048
     Dates: start: 202106

REACTIONS (1)
  - Subacute cutaneous lupus erythematosus [Recovered/Resolved with Sequelae]

NARRATIVE: CASE EVENT DATE: 20210618
